FAERS Safety Report 22270201 (Version 2)
Quarter: 2023Q2

REPORT INFORMATION
  Report Type: Spontaneous
  Country: US (occurrence: US)
  Receive Date: 20230501
  Receipt Date: 20230505
  Transmission Date: 20230721
  Serious: No
  Sender: FDA-Public Use
  Company Number: US-Calliditas-2023CAL00413

PATIENT
  Age: 40 Year
  Sex: Male

DRUGS (4)
  1. TARPEYO [Suspect]
     Active Substance: BUDESONIDE
     Indication: IgA nephropathy
     Dosage: 16MG (4MG CAPSULES) DAILY
     Route: 048
     Dates: start: 20230414
  2. LOSARTAN [Concomitant]
     Active Substance: LOSARTAN
  3. JARDIANCE [Concomitant]
     Active Substance: EMPAGLIFLOZIN
  4. ALLOPURINOL [Concomitant]
     Active Substance: ALLOPURINOL

REACTIONS (4)
  - Insomnia [Recovering/Resolving]
  - Lethargy [Recovering/Resolving]
  - Middle insomnia [Recovering/Resolving]
  - Pyrexia [Recovered/Resolved]

NARRATIVE: CASE EVENT DATE: 20230424
